FAERS Safety Report 14787934 (Version 1)
Quarter: 2018Q2

REPORT INFORMATION
  Report Type: Spontaneous
  Country: US (occurrence: US)
  Receive Date: 20180422
  Receipt Date: 20180422
  Transmission Date: 20180711
  Serious: No
  Sender: FDA-Public Use
  Company Number: US-JNJFOC-20180402069

PATIENT
  Age: 52 Year
  Sex: Male
  Weight: 80.74 kg

DRUGS (2)
  1. MOTRIN [Suspect]
     Active Substance: IBUPROFEN
     Indication: PAIN IN EXTREMITY
     Route: 048
     Dates: start: 20180402, end: 20180402
  2. MOTRIN [Suspect]
     Active Substance: IBUPROFEN
     Indication: ACCIDENTAL EXPOSURE TO PRODUCT
     Route: 048
     Dates: start: 20180402, end: 20180402

REACTIONS (1)
  - Extra dose administered [Unknown]

NARRATIVE: CASE EVENT DATE: 20180402
